FAERS Safety Report 9365910 (Version 1)
Quarter: 2013Q2

REPORT INFORMATION
  Report Type: Spontaneous
  Country: BE (occurrence: BE)
  Receive Date: 20130625
  Receipt Date: 20130625
  Transmission Date: 20140414
  Serious: Yes (Other)
  Sender: FDA-Public Use
  Company Number: PHHY2013BE064212

PATIENT
  Sex: Female

DRUGS (3)
  1. TEGRETOL CR [Suspect]
     Dosage: 300 MG (HALF IN THE MORN ING AND 1 IN THE EVENING)
     Route: 048
  2. KEPPRA [Concomitant]
     Dosage: 2 DF, BID
     Route: 048
  3. DEPAKINE [Concomitant]
     Dosage: 600 MG, QD
     Route: 048

REACTIONS (5)
  - Epilepsy [Unknown]
  - Gingival bleeding [Unknown]
  - Faeces discoloured [Unknown]
  - Drug level decreased [Unknown]
  - Wrong technique in drug usage process [Unknown]
